FAERS Safety Report 21652138 (Version 1)
Quarter: 2022Q4

REPORT INFORMATION
  Report Type: Spontaneous
  Country: US (occurrence: US)
  Receive Date: 20221128
  Receipt Date: 20221128
  Transmission Date: 20230112
  Serious: Yes (Hospitalization, Other)
  Sender: FDA-Public Use
  Company Number: US-PFIZER INC-2020170881

PATIENT
  Age: 61 Year
  Sex: Male

DRUGS (2)
  1. INLYTA [Suspect]
     Active Substance: AXITINIB
     Dosage: 5 MG, 2X/DAY (TAKE 1 TABLET TWICE DAILY)
     Dates: start: 20190617
  2. INLYTA [Suspect]
     Active Substance: AXITINIB
     Dosage: 5 MG
     Dates: start: 20200427

REACTIONS (8)
  - Diabetes mellitus [Unknown]
  - Vena cava thrombosis [Unknown]
  - Nephrectomy [Unknown]
  - Vomiting [Unknown]
  - Inflammation [Unknown]
  - Mobility decreased [Unknown]
  - Hyperaesthesia teeth [Unknown]
  - Treatment noncompliance [Unknown]

NARRATIVE: CASE EVENT DATE: 20200326
